FAERS Safety Report 4288988-3 (Version None)
Quarter: 2004Q1

REPORT INFORMATION
  Report Type: 
  Country: None (occurrence: None)
  Receive Date: 20040205
  Receipt Date: 20031105
  Transmission Date: 20041129
  Serious: Yes (Hospitalization)
  Sender: FDA-Public Use
  Company Number: MEDI-0001108

PATIENT
  Age: 57 Year
  Sex: Male
  Weight: 80.2867 kg

DRUGS (3)
  1. ETHYOL [Suspect]
     Indication: RADIOTHERAPY
     Dosage: INTRAVENOUS
     Route: 042
     Dates: start: 20030923, end: 20031030
  2. ANZIMET CARBOPLATIN (CARBOPLATIN) [Concomitant]
  3. TAXOL [Concomitant]

REACTIONS (2)
  - ARTERIAL THROMBOSIS LIMB [None]
  - PAIN IN EXTREMITY [None]
